FAERS Safety Report 8150681-4 (Version None)
Quarter: 2012Q1

REPORT INFORMATION
  Report Type: 
  Country: None (occurrence: None)
  Receive Date: 20120220
  Receipt Date: 20120215
  Transmission Date: 20120608
  Serious: Yes (Death, Hospitalization)
  Sender: FDA-Public Use
  Company Number: PHHY2012PH012077

PATIENT
  Sex: Female

DRUGS (1)
  1. GLEEVEC [Suspect]
     Indication: CHRONIC MYELOID LEUKAEMIA
     Dosage: 300 MG, DAILY
     Route: 048
     Dates: start: 20060807

REACTIONS (7)
  - CARDIOGENIC SHOCK [None]
  - COUGH [None]
  - CARDIAC ARREST [None]
  - WOUND [None]
  - HYPOCALCAEMIA [None]
  - DECREASED APPETITE [None]
  - PYREXIA [None]
